FAERS Safety Report 8784233 (Version 1)
Quarter: 2012Q4

REPORT INFORMATION
  Report Type: Spontaneous
  Country: US (occurrence: None)
  Receive Date: 20120905
  Receipt Date: 20120905
  Transmission Date: 20130627
  Serious: Yes (Other)
  Sender: FDA-Public Use
  Company Number: None

PATIENT
  Age: 54 Year
  Sex: Female
  Weight: 54.43 kg

DRUGS (4)
  1. ACTONEL [Suspect]
     Indication: OSTEOPOROSIS
     Route: 048
     Dates: start: 20120831, end: 20120831
  2. MULTIVITAMINS [Concomitant]
  3. CALCIUM CITRATE [Concomitant]
  4. MUCINEX-D 60MG PAEUDOEPHEDRINE/600MG GUAIFENEEIN [Concomitant]

REACTIONS (7)
  - Pyrexia [None]
  - Myalgia [None]
  - Arthralgia [None]
  - Insomnia [None]
  - Hyperhidrosis [None]
  - Headache [None]
  - Nausea [None]
